FAERS Safety Report 25889032 (Version 1)
Quarter: 2025Q4

REPORT INFORMATION
  Report Type: Spontaneous
  Country: JP (occurrence: JP)
  Receive Date: 20251007
  Receipt Date: 20251007
  Transmission Date: 20260117
  Serious: Yes (Other)
  Sender: ALEXION PHARMACEUTICALS
  Company Number: JP-ASTRAZENECA-202510JPN001816JP

PATIENT
  Age: 66 Year
  Sex: Female

DRUGS (2)
  1. IMFINZI [Suspect]
     Active Substance: DURVALUMAB
     Route: 065
  2. IMJUDO [Suspect]
     Active Substance: TREMELIMUMAB\TREMELIMUMAB-ACTL
     Route: 065

REACTIONS (5)
  - Fracture [Unknown]
  - Metastases to spine [Unknown]
  - Metastases to liver [Unknown]
  - Metastases to adrenals [Unknown]
  - Metastases to bone [Unknown]
